FAERS Safety Report 7034504-2 (Version None)
Quarter: 2010Q4

REPORT INFORMATION
  Report Type: 
  Country: None (occurrence: None)
  Receive Date: 20101008
  Receipt Date: 20101001
  Transmission Date: 20110411
  Serious: Yes (Hospitalization, Other)
  Sender: FDA-Public Use
  Company Number: DE-JNJFOC-20090301722

PATIENT
  Age: 66 Year
  Sex: Male

DRUGS (3)
  1. IBUPROFEN TABLETS [Suspect]
     Indication: BACK PAIN
     Dosage: 800MG, 1-2 TIMES DAILY, AS NEEDED
     Route: 048
  2. CLINDAMYCIN [Suspect]
     Indication: WOUND INFECTION
     Route: 048
  3. NEXIUM [Concomitant]
     Indication: ABDOMINAL DISCOMFORT

REACTIONS (2)
  - DIARRHOEA [None]
  - PSEUDOMEMBRANOUS COLITIS [None]
